FAERS Safety Report 15342358 (Version 2)
Quarter: 2018Q3

REPORT INFORMATION
  Report Type: Spontaneous
  Country: HK (occurrence: HK)
  Receive Date: 20180902
  Receipt Date: 20180906
  Transmission Date: 20181010
  Serious: Yes (Other)
  Sender: FDA-Public Use
  Company Number: PHHY2018HK083886

PATIENT
  Age: 64 Year
  Sex: Male

DRUGS (8)
  1. IBRUTINIB [Suspect]
     Active Substance: IBRUTINIB
     Indication: CENTRAL NERVOUS SYSTEM LYMPHOMA
     Dosage: 280 MG, QD
     Route: 065
     Dates: start: 201802
  2. NIVOLUMAB [Suspect]
     Active Substance: NIVOLUMAB
     Indication: CENTRAL NERVOUS SYSTEM LYMPHOMA
     Dosage: 180 MG, QD
     Route: 065
     Dates: start: 20180804
  3. CYTARABINE. [Suspect]
     Active Substance: CYTARABINE
     Indication: CENTRAL NERVOUS SYSTEM LYMPHOMA
     Dosage: UNK
     Route: 065
     Dates: start: 201706, end: 201801
  4. IBRUTINIB [Suspect]
     Active Substance: IBRUTINIB
     Dosage: 140 MG, QD
     Route: 065
     Dates: end: 201807
  5. OBINUTUZUMAB. [Suspect]
     Active Substance: OBINUTUZUMAB
     Indication: CENTRAL NERVOUS SYSTEM LYMPHOMA
     Dosage: 1000 MG, QD
     Route: 065
     Dates: start: 20180727
  6. PEMETREXED. [Suspect]
     Active Substance: PEMETREXED
     Indication: CENTRAL NERVOUS SYSTEM LYMPHOMA
     Dosage: 880 MG, QD
     Route: 065
     Dates: start: 20180802
  7. METHOTREXAT [Suspect]
     Active Substance: METHOTREXATE
     Indication: CENTRAL NERVOUS SYSTEM LYMPHOMA
     Dosage: UNK
     Route: 065
     Dates: start: 201706, end: 201801
  8. TEMOZOLOMIDE. [Suspect]
     Active Substance: TEMOZOLOMIDE
     Indication: CENTRAL NERVOUS SYSTEM LYMPHOMA
     Dosage: 260 MG, QD
     Route: 065
     Dates: start: 20180802

REACTIONS (2)
  - Central nervous system lymphoma [Unknown]
  - Disease recurrence [Unknown]

NARRATIVE: CASE EVENT DATE: 201807
